FAERS Safety Report 5656921-5 (Version None)
Quarter: 2008Q1

REPORT INFORMATION
  Report Type: 
  Country: None (occurrence: None)
  Receive Date: 20080219
  Receipt Date: 20071025
  Transmission Date: 20080703
  Serious: No
  Sender: FDA-Public Use
  Company Number: WAES 0710USA05863

PATIENT
  Age: 73 Year
  Sex: Female
  Weight: 68.9467 kg

DRUGS (1)
  1. JANUVIA [Suspect]
     Indication: TYPE 2 DIABETES MELLITUS
     Dosage: 100 MG/DAILY/PO
     Route: 048

REACTIONS (3)
  - ANOREXIA [None]
  - NAUSEA [None]
  - WEIGHT DECREASED [None]
